FAERS Safety Report 4712624-2 (Version None)
Quarter: 2005Q3

REPORT INFORMATION
  Report Type: 
  Country: None (occurrence: None)
  Receive Date: 20050706
  Receipt Date: 20040621
  Transmission Date: 20060218
  Serious: Yes (Life-Threatening, Hospitalization)
  Sender: FDA-Public Use
  Company Number: US-2004-026121

PATIENT
  Age: 62 Year
  Sex: Female
  Weight: 56.7 kg

DRUGS (4)
  1. CAMPATH [Suspect]
     Indication: WALDENSTROM'S MACROGLOBULINAEMIA
     Dosage: 3/10/30MG THEN 30 MG 3X/WEEK, INTRAVENOUS
     Route: 042
     Dates: start: 20040301, end: 20040402
  2. SEPTRA DS [Concomitant]
  3. FAMVIR [Concomitant]
  4. NEUPOGEN [Concomitant]

REACTIONS (3)
  - BONE MARROW DEPRESSION [None]
  - PRODUCTIVE COUGH [None]
  - PYREXIA [None]
